FAERS Safety Report 9863352 (Version 1)
Quarter: 2014Q1

REPORT INFORMATION
  Report Type: Spontaneous
  Country: JP (occurrence: JP)
  Receive Date: 20140203
  Receipt Date: 20140203
  Transmission Date: 20141002
  Serious: Yes (Other)
  Sender: FDA-Public Use
  Company Number: JP-SA-2014SA012964

PATIENT
  Sex: 0

DRUGS (4)
  1. FLUOROURACIL [Suspect]
     Indication: COLORECTAL CANCER
     Route: 065
  2. FLUOROURACIL [Suspect]
     Indication: COLORECTAL CANCER
     Dosage: 48 H CONTINOUS INFUSION, EVERY 2 WEEKS
     Route: 065
  3. OXALIPLATIN [Suspect]
     Indication: COLORECTAL CANCER
     Dosage: BOLUS
     Route: 065
  4. LEUCOVORIN [Suspect]
     Indication: COLORECTAL CANCER
     Route: 065

REACTIONS (2)
  - Bone marrow failure [Unknown]
  - Neuropathy peripheral [Unknown]
